FAERS Safety Report 5047412-3 (Version None)
Quarter: 2006Q3

REPORT INFORMATION
  Report Type: 
  Country: None (occurrence: None)
  Receive Date: 20060703
  Receipt Date: 20060623
  Transmission Date: 20061208
  Serious: Yes (Other)
  Sender: FDA-Public Use
  Company Number: 6023628F

PATIENT
  Age: 65 Year
  Sex: Female

DRUGS (3)
  1. NIASPAN [Suspect]
     Indication: HYPERLIPIDAEMIA
     Dosage: 500 MG QD PO
     Route: 048
     Dates: start: 20060501
  2. ATORVASTATIN CALCIUM [Concomitant]
  3. ACETYLSALICYLIC ACID SRT [Concomitant]

REACTIONS (4)
  - DIARRHOEA [None]
  - FLUSHING [None]
  - NAUSEA [None]
  - PRURITUS [None]
